FAERS Safety Report 8301205-X (Version None)
Quarter: 2012Q2

REPORT INFORMATION
  Report Type: 
  Country: None (occurrence: None)
  Receive Date: 20120420
  Receipt Date: 20120420
  Transmission Date: 20120825
  Serious: Yes (Other)
  Sender: FDA-Public Use
  Company Number: None

PATIENT
  Age: 41 Year
  Sex: Female
  Weight: 58.967 kg

DRUGS (1)
  1. CETIRIZINE [Suspect]
     Indication: SEASONAL ALLERGY
     Dates: start: 20120301, end: 20120415

REACTIONS (1)
  - COLITIS ULCERATIVE [None]
